FAERS Safety Report 10119751 (Version 5)
Quarter: 2014Q2

REPORT INFORMATION
  Report Type: Spontaneous
  Country: US (occurrence: US)
  Receive Date: 20140425
  Receipt Date: 20140515
  Transmission Date: 20141212
  Serious: Yes (Hospitalization, Other)
  Sender: FDA-Public Use
  Company Number: US-ACTELION-A-NJ2014-97590

PATIENT
  Age: 63 Year
  Sex: Female

DRUGS (3)
  1. VENTAVIS [Suspect]
     Indication: PULMONARY HYPERTENSION
     Dosage: 5 MCG, 6-9X/DAILY  (10 MCG/ML)
     Route: 055
     Dates: start: 20140320
  2. VENTAVIS [Suspect]
     Dosage: 5 MCG, 6X DAILY  (20 MCG/ML)
     Route: 055
     Dates: start: 20140416
  3. REVATIO [Concomitant]

REACTIONS (18)
  - Volume blood decreased [Recovering/Resolving]
  - Transfusion [Recovering/Resolving]
  - Anaemia [Unknown]
  - Anxiety [Unknown]
  - Bradyphrenia [Unknown]
  - Memory impairment [Unknown]
  - Pain in jaw [Unknown]
  - Abdominal discomfort [Unknown]
  - Cough [Unknown]
  - Feeling abnormal [Unknown]
  - Hyperchlorhydria [Unknown]
  - Fatigue [Unknown]
  - Decreased appetite [Not Recovered/Not Resolved]
  - Activities of daily living impaired [Not Recovered/Not Resolved]
  - Dyspnoea [Unknown]
  - Headache [Not Recovered/Not Resolved]
  - Nausea [Not Recovered/Not Resolved]
  - Dizziness [Not Recovered/Not Resolved]
